FAERS Safety Report 4901867-0 (Version None)
Quarter: 2006Q1

REPORT INFORMATION
  Report Type: 
  Country: None (occurrence: None)
  Receive Date: 20060206
  Receipt Date: 20060125
  Transmission Date: 20060701
  Serious: Yes (Death, Hospitalization)
  Sender: FDA-Public Use
  Company Number: GB-BRISTOL-MYERS SQUIBB COMPANY-13259122

PATIENT
  Age: 73 Year
  Sex: Female

DRUGS (16)
  1. CARBOPLATIN [Suspect]
     Indication: ENDOMETRIAL CANCER
     Route: 042
  2. DIHYDROCODEINE [Concomitant]
     Indication: PAIN
     Route: 048
  3. PARACETAMOL [Concomitant]
     Indication: PAIN
     Route: 048
  4. METOCLOPRAMIDE [Concomitant]
     Indication: NAUSEA
     Route: 048
  5. MORPHINE SULFATE [Concomitant]
     Indication: PAIN
     Route: 048
  6. WARFARIN SODIUM [Concomitant]
     Indication: DEEP VEIN THROMBOSIS
     Route: 048
  7. OMEPRAZOLE [Concomitant]
     Indication: DYSPEPSIA
  8. DEXAMETHASONE [Concomitant]
     Indication: NEOPLASM MALIGNANT
  9. SALBUTAMOL [Concomitant]
     Indication: WHEEZING
     Route: 055
  10. FENTANYL [Concomitant]
     Indication: PAIN
     Route: 062
  11. SENNA [Concomitant]
     Indication: CONSTIPATION
     Route: 048
  12. CO-DANTHRAMER [Concomitant]
     Indication: CONSTIPATION
     Route: 042
  13. CO-DANTHRAMER [Concomitant]
     Route: 030
  14. CYCLIZINE [Concomitant]
     Indication: NAUSEA
     Route: 042
  15. CYCLIZINE [Concomitant]
     Route: 030
  16. CLEXANE [Concomitant]
     Indication: THROMBOSIS PROPHYLAXIS

REACTIONS (3)
  - BRONCHOPNEUMONIA [None]
  - ENDOMETRIAL CANCER [None]
  - RENAL FAILURE [None]
